FAERS Safety Report 10224576 (Version 2)
Quarter: 2014Q2

REPORT INFORMATION
  Report Type: Spontaneous
  Country: US (occurrence: US)
  Receive Date: 20140609
  Receipt Date: 20140609
  Transmission Date: 20141212
  Serious: Yes (Other)
  Sender: FDA-Public Use
  Company Number: US-ELI_LILLY_AND_COMPANY-US201403007658

PATIENT
  Sex: Male
  Weight: 106 kg

DRUGS (10)
  1. CIALIS [Suspect]
     Indication: BENIGN PROSTATIC HYPERPLASIA
     Dosage: 5 MG, QD
     Route: 048
     Dates: start: 20140310, end: 20140328
  2. LABETALOL [Concomitant]
  3. SIMVASTATIN [Concomitant]
  4. TAMLOSIN [Concomitant]
  5. ACYCLOVIR                          /00587301/ [Concomitant]
  6. BRIMONIDINE [Concomitant]
     Route: 047
  7. FLUOROMETHOLONE [Concomitant]
     Route: 047
  8. KLOR-CON [Concomitant]
     Dosage: 20 DF, UNKNOWN
  9. WARFARIN [Concomitant]
     Dosage: 4 MG, OTHER
  10. WARFARIN [Concomitant]
     Dosage: 3 MG, OTHER

REACTIONS (1)
  - Atrial fibrillation [Recovering/Resolving]
